FAERS Safety Report 11542731 (Version 1)
Quarter: 2015Q3

REPORT INFORMATION
  Report Type: Report from Study
  Country: NL (occurrence: NL)
  Receive Date: 20150923
  Receipt Date: 20150923
  Transmission Date: 20151125
  Serious: Yes (Death)
  Sender: FDA-Public Use
  Company Number: PHHY2015NL115087

PATIENT
  Sex: Female

DRUGS (1)
  1. ACLASTA [Suspect]
     Active Substance: ZOLEDRONIC ACID
     Indication: GASTRIC CANCER
     Dosage: 5 MG, (ONCE EVERY 52 WEEKS)
     Route: 042
     Dates: start: 20140929

REACTIONS (2)
  - Off label use [Unknown]
  - Death [Fatal]
